FAERS Safety Report 21430095 (Version 1)
Quarter: 2022Q4

REPORT INFORMATION
  Report Type: Spontaneous
  Country: None (occurrence: US)
  Receive Date: 20221009
  Receipt Date: 20221009
  Transmission Date: 20230112
  Serious: Yes (Other)
  Sender: FDA-Public Use
  Company Number: US-Jiangsu Hengrui Medicine Co., Ltd.-2133610

PATIENT
  Age: 55 Year
  Sex: Female

DRUGS (7)
  1. CYCLOPHOSPHAMIDE [Suspect]
     Active Substance: CYCLOPHOSPHAMIDE
     Indication: B-cell type acute leukaemia
  2. VINCRISTINE [Suspect]
     Active Substance: VINCRISTINE
  3. DOXORUBICIN [Suspect]
     Active Substance: DOXORUBICIN
  4. DEXAMETHASONE [Suspect]
     Active Substance: DEXAMETHASONE
  5. MIDOSTAURIN [Suspect]
     Active Substance: MIDOSTAURIN
  6. METHOTREXATE [Concomitant]
     Active Substance: METHOTREXATE
  7. CYTARABINE [Concomitant]
     Active Substance: CYTARABINE

REACTIONS (10)
  - Febrile neutropenia [Unknown]
  - Acute myocardial infarction [Unknown]
  - Cerebrovascular accident [Unknown]
  - Jugular vein thrombosis [Unknown]
  - Otitis media acute [Unknown]
  - Mouth ulceration [Unknown]
  - Oral herpes [Unknown]
  - Influenza [Unknown]
  - Epistaxis [Unknown]
  - Neoplasm progression [Unknown]
